FAERS Safety Report 25266041 (Version 1)
Quarter: 2025Q2

REPORT INFORMATION
  Report Type: Spontaneous
  Country: US (occurrence: US)
  Receive Date: 20250504
  Receipt Date: 20250504
  Transmission Date: 20250717
  Serious: No
  Sender: ELI LILLY AND COMPANY
  Company Number: US-ELI_LILLY_AND_COMPANY-US202504026419

PATIENT
  Age: 60 Year
  Sex: Female

DRUGS (3)
  1. TALTZ [Suspect]
     Active Substance: IXEKIZUMAB
     Indication: Psoriasis
     Route: 065
  2. OZEMPIC [Concomitant]
     Active Substance: SEMAGLUTIDE
     Indication: Product used for unknown indication
  3. KESIMPTA [Concomitant]
     Active Substance: OFATUMUMAB
     Indication: Product used for unknown indication

REACTIONS (7)
  - Psoriasis [Not Recovered/Not Resolved]
  - Dizziness [Not Recovered/Not Resolved]
  - Underweight [Unknown]
  - Pain [Not Recovered/Not Resolved]
  - Blood glucose decreased [Unknown]
  - Injection site pain [Unknown]
  - Injection site mass [Unknown]
